FAERS Safety Report 25121872 (Version 1)
Quarter: 2025Q1

REPORT INFORMATION
  Report Type: Spontaneous
  Country: US (occurrence: US)
  Receive Date: 20250326
  Receipt Date: 20250326
  Transmission Date: 20250409
  Serious: Yes (Other)
  Sender: AMGEN
  Company Number: US-AMGEN-USASP2025056084

PATIENT

DRUGS (3)
  1. PREDNISONE [Suspect]
     Active Substance: PREDNISONE
     Indication: Paroxysmal nocturnal haemoglobinuria
     Route: 065
  2. ECULIZUMAB [Concomitant]
     Active Substance: ECULIZUMAB
     Route: 065
  3. RAVULIZUMAB [Concomitant]
     Active Substance: RAVULIZUMAB
     Route: 065

REACTIONS (6)
  - Chronic kidney disease [Unknown]
  - Embolism arterial [Unknown]
  - Venous thrombosis [Unknown]
  - Iron overload [Unknown]
  - Iron deficiency [Unknown]
  - Off label use [Unknown]
